FAERS Safety Report 18625017 (Version 3)
Quarter: 2021Q2

REPORT INFORMATION
  Report Type: Report from Study
  Country: AR (occurrence: AR)
  Receive Date: 20201216
  Receipt Date: 20210604
  Transmission Date: 20210717
  Serious: Yes (Death, Hospitalization)
  Sender: FDA-Public Use
  Company Number: NVSC2020AR332558

PATIENT
  Age: 61 Year
  Sex: Male

DRUGS (3)
  1. CERTICAN [Suspect]
     Active Substance: EVEROLIMUS
     Dosage: 2 IU, QD
     Route: 048
     Dates: start: 20101210
  2. TACROLIMUS SANDOZ [Suspect]
     Active Substance: TACROLIMUS
     Indication: RENAL TRANSPLANT
     Dosage: 4 MG, QD (APPROXIMATELY 6 MONTHS AGO)
     Route: 065
  3. CERTICAN [Suspect]
     Active Substance: EVEROLIMUS
     Indication: TRANSPLANT
     Dosage: 0.75 MG
     Route: 065

REACTIONS (12)
  - Incorrect dose administered [Unknown]
  - Chest pain [Unknown]
  - Visual impairment [Unknown]
  - Venous occlusion [Unknown]
  - Vein rupture [Recovering/Resolving]
  - Pain [Unknown]
  - Contusion [Recovering/Resolving]
  - Renal failure [Unknown]
  - Euphoric mood [Unknown]
  - Coronary artery disease [Unknown]
  - Death [Fatal]
  - Pneumonia [Recovered/Resolved]

NARRATIVE: CASE EVENT DATE: 20210201
